FAERS Safety Report 7728589-5 (Version None)
Quarter: 2011Q3

REPORT INFORMATION
  Report Type: 
  Country: None (occurrence: None)
  Receive Date: 20110831
  Receipt Date: 20110831
  Transmission Date: 20111222
  Serious: Yes (Hospitalization)
  Sender: FDA-Public Use
  Company Number: None

PATIENT
  Sex: Male
  Weight: 82 kg

DRUGS (1)
  1. INCIVEK [Suspect]
     Indication: HEPATITIS C
     Dosage: 375 Q8HR PO
     Route: 048
     Dates: start: 20110728

REACTIONS (4)
  - DEHYDRATION [None]
  - BLOOD SODIUM DECREASED [None]
  - DIARRHOEA [None]
  - PROCEDURAL SITE REACTION [None]
